FAERS Safety Report 7126504-9 (Version None)
Quarter: 2010Q4

REPORT INFORMATION
  Report Type: 
  Country: None (occurrence: None)
  Receive Date: 20101129
  Receipt Date: 20101117
  Transmission Date: 20110411
  Serious: Yes (Hospitalization, Other)
  Sender: FDA-Public Use
  Company Number: GB-PFIZER INC-2010151588

PATIENT
  Age: 46 Year
  Sex: Male

DRUGS (9)
  1. LYRICA [Suspect]
     Route: 048
  2. AMITRIPTYLINE [Concomitant]
     Dosage: 10 MG, UNK
  3. CO-CODAMOL [Concomitant]
  4. COLPERMIN [Concomitant]
  5. DIAZEPAM [Concomitant]
     Dosage: 2 MG, UNK
  6. LANSOPRAZOLE [Concomitant]
     Dosage: 30 MG, UNK
  7. LAXIDO [Concomitant]
  8. PARACETAMOL [Concomitant]
     Dosage: 500 MG, UNK
  9. PROPRANOLOL [Concomitant]
     Dosage: 80 MG, UNK

REACTIONS (6)
  - BLOOD PRESSURE INCREASED [None]
  - DYSPNOEA [None]
  - HEART RATE INCREASED [None]
  - HYPERSENSITIVITY [None]
  - RASH [None]
  - TREMOR [None]
